FAERS Safety Report 6125342-3 (Version None)
Quarter: 2009Q1

REPORT INFORMATION
  Report Type: 
  Country: None (occurrence: None)
  Receive Date: 20090320
  Receipt Date: 20090312
  Transmission Date: 20090719
  Serious: Yes (Hospitalization)
  Sender: FDA-Public Use
  Company Number: FR-BAXTER-2009BH003994

PATIENT
  Age: 51 Year
  Sex: Female

DRUGS (8)
  1. ENDOXAN BAXTER [Suspect]
     Indication: MULTIPLE SCLEROSIS
     Route: 065
     Dates: start: 20081125, end: 20081125
  2. ENDOXAN BAXTER [Suspect]
     Indication: OFF LABEL USE
     Route: 065
     Dates: start: 20081125, end: 20081125
  3. OMEPRAZOLE [Concomitant]
     Indication: GASTROOESOPHAGEAL REFLUX DISEASE
     Route: 048
  4. PROPRANOLOL [Concomitant]
     Indication: HYPERTENSION
     Route: 048
  5. ASCORBIC ACID [Concomitant]
  6. BACLOFEN [Concomitant]
  7. LEVOCARNIL [Concomitant]
  8. PREGABALIN [Concomitant]

REACTIONS (3)
  - CONVULSION [None]
  - SEPTIC SHOCK [None]
  - SYNCOPE [None]
